FAERS Safety Report 8285852-X (Version None)
Quarter: 2012Q2

REPORT INFORMATION
  Report Type: 
  Country: None (occurrence: None)
  Receive Date: 20120413
  Receipt Date: 20120403
  Transmission Date: 20120825
  Serious: Yes (Hospitalization, Other)
  Sender: FDA-Public Use
  Company Number: US-ELI_LILLY_AND_COMPANY-US201204001620

PATIENT
  Age: 72 Year
  Sex: Female

DRUGS (13)
  1. PLAVIX [Concomitant]
  2. DYAZIDE [Concomitant]
     Dosage: UNK, QD
  3. DICLOFENAC SODIUM [Concomitant]
  4. STRESSTAB WITH ZINC [Concomitant]
  5. FORTEO [Suspect]
     Dosage: 20 UG, QD
  6. VITAMINS NOS [Concomitant]
  7. VITAMIN D [Concomitant]
     Dosage: 5000 IU, UNK
  8. PREDNISONE TAB [Concomitant]
  9. COREG [Concomitant]
     Dosage: UNK, BID
  10. HYDROCODONE BITARTRATE [Concomitant]
     Dosage: 7.5 MG, UNK
  11. CLONIDINE [Concomitant]
     Dosage: UNK, QD
  12. COQ10 [Concomitant]
  13. FORTEO [Suspect]
     Indication: OSTEOPOROSIS
     Dosage: 20 UG, QD
     Dates: start: 20101001

REACTIONS (14)
  - BACK PAIN [None]
  - CATARACT [None]
  - DYSPNOEA [None]
  - BLINDNESS UNILATERAL [None]
  - THROMBOSIS [None]
  - BACK INJURY [None]
  - GENERAL PHYSICAL HEALTH DETERIORATION [None]
  - DRUG DOSE OMISSION [None]
  - STENT PLACEMENT [None]
  - ROAD TRAFFIC ACCIDENT [None]
  - MUSCULOSKELETAL CHEST PAIN [None]
  - SURGERY [None]
  - RIB FRACTURE [None]
  - STRESS [None]
